FAERS Safety Report 18550539 (Version 1)
Quarter: 2020Q4

REPORT INFORMATION
  Report Type: Report from Study
  Country: US (occurrence: US)
  Receive Date: 20201126
  Receipt Date: 20201126
  Transmission Date: 20210114
  Serious: Yes (Hospitalization)
  Sender: FDA-Public Use
  Company Number: US-SHIRE-US201926037

PATIENT
  Sex: Female

DRUGS (9)
  1. TAKHZYRO [Suspect]
     Active Substance: LANADELUMAB-FLYO
     Indication: IMMUNODEFICIENCY
     Dosage: 300 MILLIGRAM, 1X/2WKS
     Route: 058
     Dates: start: 2019
  2. TAKHZYRO [Suspect]
     Active Substance: LANADELUMAB-FLYO
     Dosage: 300 MILLIGRAM, Q2WEEKS
     Route: 058
     Dates: start: 201911
  3. FIRAZYR [Suspect]
     Active Substance: ICATIBANT ACETATE
     Indication: HEREDITARY ANGIOEDEMA
     Route: 065
  4. 644 (ECALLANTIDE) [Suspect]
     Active Substance: ECALLANTIDE
     Indication: ANGIOEDEMA
  5. TAKHZYRO [Suspect]
     Active Substance: LANADELUMAB-FLYO
     Indication: ANGIOEDEMA
     Dosage: UNK, 1X/2WKS, 300 MG/2ML
     Route: 058
     Dates: start: 20190524
  6. 644 (ECALLANTIDE) [Suspect]
     Active Substance: ECALLANTIDE
     Indication: IMMUNE SYSTEM DISORDER
     Dosage: 30 MILLIGRAM, AS REQ^D
     Route: 058
     Dates: start: 20150107
  7. FIRAZYR [Suspect]
     Active Substance: ICATIBANT ACETATE
     Indication: HEREDITARY ANGIOEDEMA
     Route: 065
  8. 644 (ECALLANTIDE) [Suspect]
     Active Substance: ECALLANTIDE
     Indication: IMMUNODEFICIENCY
     Dosage: 30 MILLIGRAM
     Route: 058
     Dates: start: 201511
  9. TAKHZYRO [Suspect]
     Active Substance: LANADELUMAB-FLYO
     Indication: IMMUNE SYSTEM DISORDER
     Dosage: 300 MILLIGRAM, 1X/2WKS
     Route: 058
     Dates: start: 20191125

REACTIONS (2)
  - Hereditary angioedema [Recovered/Resolved]
  - Intentional product use issue [Unknown]
